FAERS Safety Report 15955499 (Version 2)
Quarter: 2019Q1

REPORT INFORMATION
  Report Type: Spontaneous
  Country: GB (occurrence: GB)
  Receive Date: 20190213
  Receipt Date: 20190218
  Transmission Date: 20190417
  Serious: Yes (Death, Other)
  Sender: FDA-Public Use
  Company Number: GB-STRIDES ARCOLAB LIMITED-2019SP001142

PATIENT
  Age: 57 Year
  Sex: Female

DRUGS (6)
  1. CICLOSPORIN [Concomitant]
     Active Substance: CYCLOSPORINE
     Indication: RENAL TRANSPLANT
     Dosage: UNK
     Route: 065
  2. MYCOPHENOLATE MOFETIL. [Suspect]
     Active Substance: MYCOPHENOLATE MOFETIL
     Indication: RENAL TRANSPLANT
     Dosage: 1000 MG, UNKNOWN
     Route: 065
  3. PREDNISOLONE. [Concomitant]
     Active Substance: PREDNISOLONE
     Dosage: UNK, DOSE REDUCED
     Route: 065
  4. CICLOSPORIN [Concomitant]
     Active Substance: CYCLOSPORINE
     Dosage: UNK, DOSE REDUCED
     Route: 065
  5. MYCOPHENOLATE MOFETIL. [Suspect]
     Active Substance: MYCOPHENOLATE MOFETIL
     Dosage: UNK, DOSE REDUCED
     Route: 065
  6. PREDNISOLONE. [Concomitant]
     Active Substance: PREDNISOLONE
     Indication: RENAL TRANSPLANT
     Dosage: UNK
     Route: 065

REACTIONS (10)
  - Tearfulness [Unknown]
  - Depressed mood [Unknown]
  - Memory impairment [Unknown]
  - Central nervous system lymphoma [Fatal]
  - Confusional state [Unknown]
  - Post transplant lymphoproliferative disorder [Fatal]
  - Amnesia [Unknown]
  - Prosopagnosia [Unknown]
  - Paraesthesia [Unknown]
  - Headache [Unknown]
